FAERS Safety Report 8565676-6 (Version None)
Quarter: 2012Q3

REPORT INFORMATION
  Report Type: 
  Country: None (occurrence: None)
  Receive Date: 20120803
  Receipt Date: 20120724
  Transmission Date: 20120928
  Serious: Yes (Hospitalization, Other)
  Sender: FDA-Public Use
  Company Number: FR-ABBOTT-12P-056-0956601-00

PATIENT
  Age: 60 Year
  Sex: Male

DRUGS (7)
  1. ALDACTONE [Concomitant]
     Indication: HYPERTENSION
  2. BISOPROLOL FUMARATE [Suspect]
     Indication: HYPERTENSION
  3. IMOVANE [Concomitant]
     Indication: PRODUCT USED FOR UNKNOWN INDICATION
  4. TARKA [Suspect]
     Indication: HYPERTENSION
  5. ATORVASTATIN [Concomitant]
     Indication: PRODUCT USED FOR UNKNOWN INDICATION
  6. ASPEGIC 1000 [Concomitant]
     Indication: PLATELET AGGREGATION
  7. TRANDOLAPRIL [Concomitant]
     Indication: HYPERTENSION

REACTIONS (14)
  - AGITATION [None]
  - LACTIC ACIDOSIS [None]
  - ATRIOVENTRICULAR BLOCK [None]
  - CYTOLYTIC HEPATITIS [None]
  - TOXICITY TO VARIOUS AGENTS [None]
  - HYPERKALAEMIA [None]
  - RENAL FAILURE ACUTE [None]
  - VOMITING [None]
  - CARDIOGENIC SHOCK [None]
  - HYPOXIA [None]
  - COMA [None]
  - BRADYCARDIA [None]
  - HYPOTENSION [None]
  - ACUTE RESPIRATORY DISTRESS SYNDROME [None]
